FAERS Safety Report 8444885-0 (Version None)
Quarter: 2012Q2

REPORT INFORMATION
  Report Type: 
  Country: None (occurrence: None)
  Receive Date: 20120323
  Receipt Date: 20111019
  Transmission Date: 20120825
  Serious: Yes (Other)
  Sender: FDA-Public Use
  Company Number: 163-21880-11082109

PATIENT
  Sex: Female

DRUGS (3)
  1. REVLIMID [Suspect]
     Indication: MULTIPLE MYELOMA
     Dosage: 25 MG, QD X 21 DAYS, PO 15 MG, QD, X 21 DAYS, PO 10 MG, PO
     Route: 048
     Dates: start: 20110125
  2. REVLIMID [Suspect]
     Indication: MULTIPLE MYELOMA
     Dosage: 25 MG, QD X 21 DAYS, PO 15 MG, QD, X 21 DAYS, PO 10 MG, PO
     Route: 048
     Dates: start: 20110816
  3. NOLVADEX [Concomitant]

REACTIONS (4)
  - DIZZINESS [None]
  - ANAEMIA [None]
  - DYSPNOEA [None]
  - ASTHENIA [None]
